FAERS Safety Report 7043974-5 (Version None)
Quarter: 2010Q4

REPORT INFORMATION
  Report Type: 
  Country: None (occurrence: None)
  Receive Date: 20101012
  Receipt Date: 20101012
  Transmission Date: 20110411
  Serious: Yes (Other)
  Sender: FDA-Public Use
  Company Number: None

PATIENT
  Age: 55 Year
  Sex: Female
  Weight: 115.2136 kg

DRUGS (1)
  1. LIPITOR [Suspect]
     Indication: HYPERLIPIDAEMIA
     Dosage: 40 MGM EVERY DAY PO
     Route: 048
     Dates: start: 19950101, end: 20080605

REACTIONS (5)
  - ERYTHEMA [None]
  - MYALGIA [None]
  - MYOSITIS [None]
  - SKIN DISCOLOURATION [None]
  - SWELLING [None]
